FAERS Safety Report 18951565 (Version 2)
Quarter: 2021Q1

REPORT INFORMATION
  Report Type: Spontaneous
  Country: US (occurrence: US)
  Receive Date: 20210301
  Receipt Date: 20210325
  Transmission Date: 20210420
  Serious: Yes (Other)
  Sender: FDA-Public Use
  Company Number: US-DRREDDYS-USA/USA/21/0132554

PATIENT
  Age: 48 Year
  Sex: Female

DRUGS (5)
  1. DOBUTAMINE HYDROCHLORIDE. [Suspect]
     Active Substance: DOBUTAMINE HYDROCHLORIDE
     Indication: HYPOTENSION
  2. ERYTHROPOIETIN [Concomitant]
     Active Substance: ERYTHROPOIETIN
     Indication: ABDOMINAL WALL HAEMATOMA
  3. IRON [Concomitant]
     Active Substance: IRON
     Indication: HAEMOPERITONEUM
  4. ERYTHROPOIETIN [Concomitant]
     Active Substance: ERYTHROPOIETIN
     Indication: HAEMOPERITONEUM
  5. IRON [Concomitant]
     Active Substance: IRON
     Indication: ABDOMINAL WALL HAEMATOMA

REACTIONS (1)
  - Drug ineffective [Unknown]
